FAERS Safety Report 23171894 (Version 9)
Quarter: 2025Q2

REPORT INFORMATION
  Report Type: Spontaneous
  Country: US (occurrence: US)
  Receive Date: 20231110
  Receipt Date: 20250523
  Transmission Date: 20250717
  Serious: No
  Sender: VERTEX
  Company Number: US-VERTEX PHARMACEUTICALS-2023-005982

PATIENT

DRUGS (5)
  1. TRIKAFTA [Suspect]
     Active Substance: ELEXACAFTOR\IVACAFTOR\TEZACAFTOR
     Indication: Cystic fibrosis
     Route: 048
     Dates: start: 2019
  2. TRIKAFTA [Suspect]
     Active Substance: ELEXACAFTOR\IVACAFTOR\TEZACAFTOR
     Route: 048
  3. HYDROXYZINE [Suspect]
     Active Substance: HYDROXYZINE HYDROCHLORIDE
     Indication: Pruritus
     Route: 065
  4. HYDROXYZINE [Suspect]
     Active Substance: HYDROXYZINE HYDROCHLORIDE
     Route: 065
  5. DOXYCYCLINE [Concomitant]
     Active Substance: DOXYCYCLINE
     Indication: Bacterial disease carrier

REACTIONS (27)
  - Irritable bowel syndrome [Unknown]
  - Posture abnormal [Unknown]
  - Back pain [Recovered/Resolved]
  - Eye swelling [Unknown]
  - Adverse event following immunisation [Recovered/Resolved]
  - Brain fog [Unknown]
  - Periarthritis [Unknown]
  - Swelling face [Unknown]
  - Anxiety [Unknown]
  - Oedema [Unknown]
  - Balance disorder [Unknown]
  - Food intolerance [Unknown]
  - Cognitive disorder [Unknown]
  - Increased need for sleep [Unknown]
  - Middle insomnia [Unknown]
  - Appetite disorder [Unknown]
  - Weight increased [Unknown]
  - Illness [Unknown]
  - Productive cough [Unknown]
  - Infective pulmonary exacerbation of cystic fibrosis [Not Recovered/Not Resolved]
  - Pain [Unknown]
  - Fatigue [Unknown]
  - Depression [Unknown]
  - Immunisation reaction [Recovered/Resolved]
  - Arthralgia [Unknown]
  - Abdominal distension [Not Recovered/Not Resolved]
  - Pruritus [Recovering/Resolving]
